FAERS Safety Report 5227802-6 (Version None)
Quarter: 2007Q1

REPORT INFORMATION
  Report Type: 
  Country: None (occurrence: None)
  Receive Date: 20070202
  Receipt Date: 20070122
  Transmission Date: 20070707
  Serious: Yes (Other)
  Sender: FDA-Public Use
  Company Number: US-PFIZER INC-2007006880

PATIENT
  Sex: Female
  Weight: 62.6 kg

DRUGS (11)
  1. CHANTIX [Suspect]
     Indication: SMOKING CESSATION THERAPY
  2. ALL OTHER THERAPEUTIC PRODUCTS [Concomitant]
  3. GLUCOPHAGE [Concomitant]
  4. LISINOPRIL [Concomitant]
  5. GLYBURIDE [Concomitant]
  6. POTASSIUM ACETATE [Concomitant]
  7. SITAGLIPTIN [Concomitant]
  8. TRIAZOLAM [Concomitant]
  9. MIRAPEX [Concomitant]
  10. CALCIUM [Concomitant]
  11. MAGNESIUM [Concomitant]

REACTIONS (2)
  - ABNORMAL DREAMS [None]
  - FEELING DRUNK [None]
